FAERS Safety Report 21943529 (Version 1)
Quarter: 2023Q1

REPORT INFORMATION
  Report Type: Report from Study
  Country: US (occurrence: US)
  Receive Date: 20230202
  Receipt Date: 20230202
  Transmission Date: 20230418
  Serious: Yes (Other)
  Sender: FDA-Public Use
  Company Number: US-ABBVIE-22K-163-4403427-00

PATIENT
  Age: 39 Year
  Sex: Male

DRUGS (3)
  1. SKYRIZI [Suspect]
     Active Substance: RISANKIZUMAB-RZAA
     Indication: Psoriasis
     Dosage: WEEK 04, 1 IN ONCE
     Route: 058
     Dates: start: 20220311, end: 20220412
  2. SKYRIZI [Suspect]
     Active Substance: RISANKIZUMAB-RZAA
     Dosage: WEEK 0, 1 IN ONCE
     Route: 058
     Dates: start: 20220311, end: 20220311
  3. SKYRIZI [Suspect]
     Active Substance: RISANKIZUMAB-RZAA
     Dosage: FIRST ADMIN DATE WAS 2022
     Route: 058

REACTIONS (5)
  - Shoulder operation [Unknown]
  - Pruritus [Not Recovered/Not Resolved]
  - Nail disorder [Unknown]
  - Arthralgia [Not Recovered/Not Resolved]
  - Rash [Unknown]

NARRATIVE: CASE EVENT DATE: 20220701
